FAERS Safety Report 5622695-7 (Version None)
Quarter: 2008Q1

REPORT INFORMATION
  Report Type: 
  Country: None (occurrence: None)
  Receive Date: 20080208
  Receipt Date: 20080208
  Transmission Date: 20080703
  Serious: Yes (Hospitalization)
  Sender: FDA-Public Use
  Company Number: None

PATIENT
  Age: 10 Year
  Sex: Female

DRUGS (1)
  1. OPTIVAR [Suspect]
     Indication: CONJUNCTIVITIS ALLERGIC
     Dosage: 1 DROP ONE DOSE OCULAR
     Dates: start: 20071115

REACTIONS (8)
  - ANXIETY [None]
  - ATAXIA [None]
  - CONFUSIONAL STATE [None]
  - DISORIENTATION [None]
  - FLUSHING [None]
  - MENTAL IMPAIRMENT [None]
  - MYDRIASIS [None]
  - NYSTAGMUS [None]
